FAERS Safety Report 15839216 (Version 3)
Quarter: 2021Q2

REPORT INFORMATION
  Report Type: Spontaneous
  Country: SZ (occurrence: CH)
  Receive Date: 20190117
  Receipt Date: 20210413
  Transmission Date: 20210716
  Serious: Yes (Hospitalization, Other)
  Sender: FDA-Public Use
  Company Number: CH-JNJFOC-20190116863

PATIENT
  Age: 82 Year
  Sex: Female

DRUGS (11)
  1. LOSARTAN. [Concomitant]
     Active Substance: LOSARTAN
     Dosage: 100 MG, QD
  2. CHOLECALCIFEROL [Concomitant]
     Active Substance: CHOLECALCIFEROL
     Dosage: 400 IU, QD
  3. MOXONIDINE [Concomitant]
     Active Substance: MOXONIDINE
     Dosage: 0.2 MG, QD
  4. RIVAROXABAN [Suspect]
     Active Substance: RIVAROXABAN
     Indication: ATRIAL FIBRILLATION
     Dosage: 20 MG, QD
     Route: 048
  5. SIMVASTATIN. [Concomitant]
     Active Substance: SIMVASTATIN
     Dosage: 40 MG, QD
  6. EZETIMIBE. [Concomitant]
     Active Substance: EZETIMIBE
     Dosage: 10 MG, QD
  7. ALLOPURINOL. [Concomitant]
     Active Substance: ALLOPURINOL
     Dosage: `100 MG, QD
  8. METOPROLOL. [Concomitant]
     Active Substance: METOPROLOL
     Dosage: 200 MG, QD
  9. CALCIUM [Concomitant]
     Active Substance: CALCIUM
     Dosage: 500 MG
  10. SPIRONOLACTONE. [Concomitant]
     Active Substance: SPIRONOLACTONE
     Dosage: 50 MG, QD
  11. FUROSEMIDE. [Concomitant]
     Active Substance: FUROSEMIDE
     Dosage: 20 MG, QD

REACTIONS (7)
  - Subdural haematoma [Unknown]
  - Hepatic function abnormal [Recovering/Resolving]
  - Weight increased [Unknown]
  - Petechiae [Recovered/Resolved]
  - Acute kidney injury [Recovered/Resolved]
  - Drug reaction with eosinophilia and systemic symptoms [Recovering/Resolving]
  - Oedema peripheral [Recovering/Resolving]
